FAERS Safety Report 7295175-3 (Version None)
Quarter: 2011Q1

REPORT INFORMATION
  Report Type: 
  Country: None (occurrence: None)
  Receive Date: 20110216
  Receipt Date: 20101028
  Transmission Date: 20110831
  Serious: No
  Sender: FDA-Public Use
  Company Number: A0890632A

PATIENT
  Age: 43 Year
  Sex: Male
  Weight: 111.4 kg

DRUGS (1)
  1. VOTRIENT [Suspect]
     Dosage: 200MG PER DAY
     Route: 048
     Dates: start: 20101004

REACTIONS (3)
  - BLOOD PRESSURE INCREASED [None]
  - DIARRHOEA [None]
  - FATIGUE [None]
